FAERS Safety Report 6217694-0 (Version None)
Quarter: 2009Q2

REPORT INFORMATION
  Report Type: 
  Country: None (occurrence: None)
  Receive Date: 20090603
  Receipt Date: 20090603
  Transmission Date: 20091009
  Serious: No
  Sender: FDA-Public Use
  Company Number: None

PATIENT
  Age: 70 Year
  Sex: Male
  Weight: 68.0396 kg

DRUGS (1)
  1. FLUOROURACIL [Suspect]
     Dosage: TOPICAL
     Route: 061

REACTIONS (5)
  - ABDOMINAL DISCOMFORT [None]
  - LIP BLISTER [None]
  - SWELLING FACE [None]
  - ULCER [None]
  - VISUAL IMPAIRMENT [None]
